FAERS Safety Report 5482911-1 (Version None)
Quarter: 2007Q4

REPORT INFORMATION
  Report Type: 
  Country: None (occurrence: None)
  Receive Date: 20071011
  Receipt Date: 20070928
  Transmission Date: 20080405
  Serious: Yes (Hospitalization)
  Sender: FDA-Public Use
  Company Number: US-WYE-H00437507

PATIENT
  Age: 55 Year
  Sex: Female

DRUGS (10)
  1. PROTONIX [Suspect]
     Dosage: UNKNOWN
  2. LEUCOVORIN CALCIUM [Suspect]
     Indication: COLON CANCER
     Dosage: DOSE AND FREQUENCY UNSPECIFIED
     Route: 042
     Dates: start: 20070207, end: 20070807
  3. LEUCOVORIN CALCIUM [Suspect]
     Dosage: (400 MG/M2) 744 MG  TOTAL
     Route: 042
     Dates: start: 20070808
  4. EMEND [Suspect]
     Dosage: UNKNOWN
  5. FLUOROURACIL [Suspect]
     Indication: COLON CANCER
     Dosage: (400 MG/M2) 2790 MG TOTAL
     Route: 042
     Dates: start: 20070207, end: 20070807
  6. MARINOL [Suspect]
     Dosage: UNKNOWN
  7. CETUXIMAB [Suspect]
     Indication: COLON CANCER
     Dosage: DOSE AND FREQUENCY UNSPECIFIED
     Route: 042
     Dates: start: 20070207, end: 20070807
  8. CETUXIMAB [Suspect]
     Dosage: (400 MG/M2)  279 MG TOTAL
     Route: 042
     Dates: start: 20070808
  9. OXALIPLATIN [Suspect]
     Indication: COLON CANCER
     Dosage: DOSE AND FREQUENCY UNSPECIFIED
     Route: 042
     Dates: start: 20070207, end: 20070807
  10. OXALIPLATIN [Suspect]
     Dosage: (85 MG/M2) 74 MG TOTAL
     Route: 042
     Dates: start: 20070808

REACTIONS (8)
  - BLOOD CULTURE POSITIVE [None]
  - CALCULUS URETERIC [None]
  - DRUG TOXICITY [None]
  - ESCHERICHIA INFECTION [None]
  - HYDRONEPHROSIS [None]
  - INFECTION [None]
  - NEUTROPHIL COUNT DECREASED [None]
  - URETERIC OBSTRUCTION [None]
